FAERS Safety Report 14205413 (Version 4)
Quarter: 2017Q4

REPORT INFORMATION
  Report Type: Spontaneous
  Country: FR (occurrence: FR)
  Receive Date: 20171120
  Receipt Date: 20171215
  Transmission Date: 20180321
  Serious: Yes (Death, Other)
  Sender: FDA-Public Use
  Company Number: FR-GEHC-2017CSU003730

PATIENT

DRUGS (1)
  1. VISIPAQUE [Suspect]
     Active Substance: IODIXANOL
     Indication: ABDOMINAL PAIN
     Dosage: 110 ML, SINGLE
     Route: 042
     Dates: start: 20171025, end: 20171025

REACTIONS (5)
  - Dizziness [Fatal]
  - Loss of consciousness [Recovered/Resolved]
  - Dyspnoea [Fatal]
  - Visual impairment [Fatal]
  - Discomfort [Fatal]

NARRATIVE: CASE EVENT DATE: 20171025
